FAERS Safety Report 8648841 (Version 4)
Quarter: 2013Q4

REPORT INFORMATION
  Report Type: Spontaneous
  Country: US (occurrence: US)
  Receive Date: 20120704
  Receipt Date: 20131126
  Transmission Date: 20140711
  Serious: Yes (Hospitalization)
  Sender: FDA-Public Use
  Company Number: US-BIOGENIDEC-2012BI022792

PATIENT
  Age: 48 Year
  Sex: Female

DRUGS (2)
  1. AVONEX [Suspect]
     Indication: MULTIPLE SCLEROSIS
     Route: 030
     Dates: start: 20100910, end: 20121107
  2. AVONEX [Suspect]
     Indication: MULTIPLE SCLEROSIS
     Route: 030
     Dates: start: 20131008

REACTIONS (4)
  - Brain stem infarction [Recovered/Resolved]
  - Cerebrovascular accident [Recovered/Resolved]
  - Renal failure acute [Recovered/Resolved]
  - Multiple sclerosis relapse [Recovered/Resolved]
